FAERS Safety Report 15797698 (Version 2)
Quarter: 2019Q3

REPORT INFORMATION
  Report Type: Spontaneous
  Country: US (occurrence: US)
  Receive Date: 20190108
  Receipt Date: 20190802
  Transmission Date: 20191004
  Serious: No
  Sender: FDA-Public Use
  Company Number: US-MYLANLABS-2018M1094381

PATIENT
  Sex: Female
  Weight: 84 kg

DRUGS (3)
  1. COLCRYS [Concomitant]
     Active Substance: COLCHICINE
     Dosage: UNK
  2. VALSARTAN AND HYDROCHLOROTHIAZIDE TABLETS, USP [Suspect]
     Active Substance: HYDROCHLOROTHIAZIDE\VALSARTAN
     Indication: HYPERTENSION
     Dosage: UNK
     Route: 048
     Dates: end: 201812
  3. ALLOPURINOL. [Concomitant]
     Active Substance: ALLOPURINOL
     Dosage: UNK

REACTIONS (1)
  - Chronic obstructive pulmonary disease [Not Recovered/Not Resolved]
